FAERS Safety Report 5467393-8 (Version None)
Quarter: 2007Q3

REPORT INFORMATION
  Report Type: 
  Country: None (occurrence: None)
  Receive Date: 20070925
  Receipt Date: 20070913
  Transmission Date: 20080115
  Serious: Yes (Disabling, Other)
  Sender: FDA-Public Use
  Company Number: GB-PFIZER INC-2007069057

PATIENT
  Sex: Female
  Weight: 70 kg

DRUGS (8)
  1. VFEND [Suspect]
     Indication: ESCHERICHIA INFECTION
     Route: 042
     Dates: start: 20070513, end: 20070604
  2. VFEND [Suspect]
     Indication: CANDIDIASIS
  3. VFEND [Suspect]
     Indication: ENTEROCOCCAL INFECTION
  4. TEICOPLANIN [Concomitant]
     Route: 042
     Dates: start: 20070529, end: 20070625
  5. VALPROATE SODIUM [Concomitant]
     Route: 042
  6. TAZOCIN [Concomitant]
     Route: 042
     Dates: start: 20070529, end: 20070625
  7. METRONIDAZOLE [Concomitant]
     Route: 042
     Dates: start: 20070508, end: 20070625
  8. LEVOTHYROXINE SODIUM [Concomitant]
     Route: 042

REACTIONS (7)
  - AGITATION [None]
  - BLOOD PRESSURE DECREASED [None]
  - C-REACTIVE PROTEIN INCREASED [None]
  - CONFUSIONAL STATE [None]
  - HAEMOGLOBIN DECREASED [None]
  - HALLUCINATION [None]
  - HEART RATE INCREASED [None]
